FAERS Safety Report 8076827-4 (Version None)
Quarter: 2012Q1

REPORT INFORMATION
  Report Type: 
  Country: None (occurrence: None)
  Receive Date: 20120127
  Receipt Date: 20120112
  Transmission Date: 20120608
  Serious: Yes (Other)
  Sender: FDA-Public Use
  Company Number: FR-MERCK-1201FRA00051

PATIENT
  Age: 28 Year
  Sex: Male

DRUGS (11)
  1. EMEND [Suspect]
     Route: 048
     Dates: start: 20111201, end: 20111202
  2. EMEND [Suspect]
     Route: 048
     Dates: start: 20111228, end: 20111228
  3. FLUOROURACIL [Concomitant]
     Indication: COLORECTAL CANCER
     Route: 065
  4. EMEND [Suspect]
     Route: 048
     Dates: start: 20120111, end: 20120111
  5. EMEND [Suspect]
     Route: 048
     Dates: start: 20111214, end: 20111214
  6. EMEND [Suspect]
     Route: 048
     Dates: start: 20111130, end: 20111130
  7. EMEND [Suspect]
     Route: 048
     Dates: start: 20111215, end: 20111216
  8. EMEND [Suspect]
     Route: 048
     Dates: start: 20111229, end: 20111230
  9. IRINOTECAN HCL [Suspect]
     Indication: COLORECTAL CANCER
     Route: 065
     Dates: start: 20110801, end: 20120111
  10. FOLIC ACID [Concomitant]
     Route: 065
  11. ATROPINE [Concomitant]
     Route: 065

REACTIONS (2)
  - PANCREATITIS [None]
  - DRUG INTERACTION [None]
